FAERS Safety Report 7272048-3 (Version None)
Quarter: 2011Q1

REPORT INFORMATION
  Report Type: 
  Country: None (occurrence: None)
  Receive Date: 20110203
  Receipt Date: 20110126
  Transmission Date: 20110831
  Serious: Yes (Hospitalization, Other)
  Sender: FDA-Public Use
  Company Number: JP-JNJFOC-20110101314

PATIENT
  Age: 6 Decade
  Sex: Female

DRUGS (5)
  1. DUROTEP MT [Suspect]
     Indication: CANCER PAIN
     Dosage: 2 PATCHES WERE APPLIED
     Route: 062
  2. DUROTEP MT [Suspect]
     Route: 062
  3. REVLIMID [Suspect]
     Route: 048
  4. DUROTEP MT [Suspect]
     Route: 062
  5. REVLIMID [Suspect]
     Indication: PRODUCT USED FOR UNKNOWN INDICATION
     Route: 048

REACTIONS (5)
  - LOSS OF CONSCIOUSNESS [None]
  - WRONG TECHNIQUE IN DRUG USAGE PROCESS [None]
  - EXPOSURE TO EXTREME TEMPERATURE [None]
  - PYREXIA [None]
  - STUPOR [None]
